FAERS Safety Report 9736653 (Version 1)
Quarter: 2013Q4

REPORT INFORMATION
  Report Type: Spontaneous
  Country: US (occurrence: US)
  Receive Date: 20131206
  Receipt Date: 20131206
  Transmission Date: 20140711
  Serious: No
  Sender: FDA-Public Use
  Company Number: US-GILEAD-2009-0022803

PATIENT
  Sex: Female
  Weight: 85 kg

DRUGS (12)
  1. LETAIRIS [Suspect]
     Indication: PULMONARY ARTERIAL HYPERTENSION
     Route: 048
     Dates: start: 20080226
  2. REVATIO [Suspect]
  3. VENTAVIS [Concomitant]
  4. VASOTEC [Concomitant]
  5. FUROSEMIDE [Concomitant]
  6. OXYGEN [Concomitant]
  7. PULMICORT [Concomitant]
  8. COMBIVENT [Concomitant]
  9. CEFUROXIME AXETIL [Concomitant]
  10. DRAMAMINE [Concomitant]
  11. XANAX [Concomitant]
  12. PREVACID [Concomitant]

REACTIONS (3)
  - Ear discomfort [Unknown]
  - Nasal congestion [Unknown]
  - Throat irritation [Unknown]
